FAERS Safety Report 7509831-2 (Version None)
Quarter: 2011Q2

REPORT INFORMATION
  Report Type: 
  Country: None (occurrence: None)
  Receive Date: 20110527
  Receipt Date: 20110516
  Transmission Date: 20111010
  Serious: Yes (Hospitalization, Congenital Anomaly)
  Sender: FDA-Public Use
  Company Number: A0929195A

PATIENT
  Sex: Male

DRUGS (1)
  1. PAXIL [Suspect]
     Route: 064

REACTIONS (10)
  - PULMONARY ARTERY STENOSIS CONGENITAL [None]
  - CONGENITAL AORTIC ANOMALY [None]
  - FOETAL GROWTH RESTRICTION [None]
  - CONGENITAL PULMONARY VALVE DISORDER [None]
  - TRANSPOSITION OF THE GREAT VESSELS [None]
  - PATENT DUCTUS ARTERIOSUS [None]
  - ATRIAL SEPTAL DEFECT [None]
  - UNIVENTRICULAR HEART [None]
  - CONGENITAL PULMONARY ARTERY ANOMALY [None]
  - DRUG EXPOSURE DURING PREGNANCY [None]
